FAERS Safety Report 6781732-7 (Version None)
Quarter: 2010Q2

REPORT INFORMATION
  Report Type: 
  Country: None (occurrence: None)
  Receive Date: 20100621
  Receipt Date: 20100609
  Transmission Date: 20101027
  Serious: No
  Sender: FDA-Public Use
  Company Number: US-B.I. PHARMACEUTICALS,INC./RIDGEFIELD-2010-BP-06589BP

PATIENT
  Sex: Female

DRUGS (6)
  1. SPIRIVA [Suspect]
     Indication: CHRONIC OBSTRUCTIVE PULMONARY DISEASE
     Dosage: 18 MCG
     Route: 055
     Dates: start: 20070101
  2. SPIRIVA [Suspect]
     Indication: ASTHMA
  3. SPIRIVA [Suspect]
     Indication: BRONCHITIS CHRONIC
  4. STARLIX [Concomitant]
     Indication: DIABETES MELLITUS
  5. ACTOS [Concomitant]
     Indication: DIABETES MELLITUS
  6. METFORMIN [Concomitant]
     Indication: DIABETES MELLITUS

REACTIONS (9)
  - EYE PAIN [None]
  - GLAUCOMA [None]
  - GLYCOSYLATED HAEMOGLOBIN [None]
  - INTRAOCULAR PRESSURE INCREASED [None]
  - INTRAOCULAR PRESSURE TEST [None]
  - PAIN [None]
  - SKIN IRRITATION [None]
  - TREATMENT FAILURE [None]
  - URINARY RETENTION [None]
